FAERS Safety Report 16379911 (Version 1)
Quarter: 2019Q2

REPORT INFORMATION
  Report Type: Spontaneous
  Country: US (occurrence: US)
  Receive Date: 20190531
  Receipt Date: 20190531
  Transmission Date: 20190711
  Serious: No
  Sender: FDA-Public Use
  Company Number: US-SEBELA IRELAND LIMITED-2018SEB00218

PATIENT
  Age: 54 Year
  Sex: Female
  Weight: 72.56 kg

DRUGS (8)
  1. IMITREX [Concomitant]
     Active Substance: SUMATRIPTAN SUCCINATE
     Dosage: 100 MG, 1X/DAY AS NEEDED
  2. LEXAPRO [Concomitant]
     Active Substance: ESCITALOPRAM OXALATE
     Dosage: 10 MG, 1X/DAY
     Dates: start: 2014
  3. ALOSETRON HYDROCHLORIDE. [Suspect]
     Active Substance: ALOSETRON HYDROCHLORIDE
     Indication: IRRITABLE BOWEL SYNDROME
     Dosage: 0.5 MG, 1X/DAY
     Route: 048
     Dates: start: 20180801, end: 201808
  4. LOMOTIL [Concomitant]
     Active Substance: ATROPINE SULFATE\DIPHENOXYLATE HYDROCHLORIDE
     Dosage: 10 TO 12 PER DAY
     Dates: start: 2003
  5. ESTRADIOL. [Concomitant]
     Active Substance: ESTRADIOL
     Dosage: 1 MG, 1X/DAY
     Dates: start: 2003
  6. LEVBID [Concomitant]
     Active Substance: HYOSCYAMINE SULFATE
     Dosage: 0.375 MG, EVERY 4 HOURS
  7. LOTRONEX [Suspect]
     Active Substance: ALOSETRON HYDROCHLORIDE
     Indication: IRRITABLE BOWEL SYNDROME
     Dosage: UNK
  8. CLARITIN OTC [Concomitant]
     Dosage: UNK, 1X/DAY AS NEEDED

REACTIONS (1)
  - Migraine [Not Recovered/Not Resolved]

NARRATIVE: CASE EVENT DATE: 20180801
